FAERS Safety Report 4432037-0 (Version None)
Quarter: 2004Q3

REPORT INFORMATION
  Report Type: 
  Country: None (occurrence: None)
  Receive Date: 20040818
  Receipt Date: 20040802
  Transmission Date: 20050211
  Serious: Yes (Other)
  Sender: FDA-Public Use
  Company Number: 200467

PATIENT
  Age: 61 Year
  Sex: Male

DRUGS (7)
  1. AVONEX [Suspect]
     Indication: MULTIPLE SCLEROSIS
     Dosage: 30 MCG QW IM
     Route: 030
  2. AVONEX [Suspect]
     Indication: MULTIPLE SCLEROSIS
     Dosage: 30 MCG QW IM
     Route: 030
  3. AMITRIPTYLINE HCL [Concomitant]
  4. ASPIRIN [Concomitant]
  5. HYZAAR [Concomitant]
  6. ZOLOFT [Concomitant]
  7. ZOCOR [Concomitant]

REACTIONS (4)
  - METASTASES TO LYMPH NODES [None]
  - RECURRENT CANCER [None]
  - SCAR [None]
  - SQUAMOUS CELL CARCINOMA OF SKIN [None]
